FAERS Safety Report 9292490 (Version 1)
Quarter: 2013Q1

REPORT INFORMATION
  Report Type: Spontaneous
  Country: US (occurrence: None)
  Receive Date: 20121214
  Receipt Date: 20121214
  Transmission Date: 20140127
  Serious: Yes (Other)
  Sender: FDA-Public Use
  Company Number: US-JNJFOC-2007324937

PATIENT
  Age: 26 Year
  Sex: Male
  Weight: 72.58 kg

DRUGS (2)
  1. SUDAFED 24 HOUR TABLETS (PSEUDOPHEDRINE HYDROCHLORIDE) TABLET [Suspect]
     Indication: SINUS DISORDER
     Dosage: 2 DOSES ONCE
     Dates: start: 20070621, end: 20070621
  2. ZYRTEC (CETIRIZINE HYDROCHLORIDE) [Suspect]
     Indication: HYPERSENSITIVITY
     Dosage: UNSPECIFIED
     Dates: start: 20070621

REACTIONS (2)
  - Accidental overdose [None]
  - Sinus headache [None]
